FAERS Safety Report 7464617-2 (Version None)
Quarter: 2011Q2

REPORT INFORMATION
  Report Type: 
  Country: None (occurrence: None)
  Receive Date: 20110509
  Receipt Date: 20110324
  Transmission Date: 20111010
  Serious: Yes (Hospitalization, Other)
  Sender: FDA-Public Use
  Company Number: US-BAYER-201023785NA

PATIENT
  Age: 20 Year
  Sex: Female
  Weight: 81.633 kg

DRUGS (8)
  1. ANTIBIOTICS [Concomitant]
  2. MOTRIN [Concomitant]
     Indication: MYALGIA
     Dosage: 600 MG, UNK
     Dates: start: 20091104
  3. YAZ [Suspect]
     Indication: PRODUCT USED FOR UNKNOWN INDICATION
  4. DROSPIRENONE AND ETHINYL ESTRADIOL [Suspect]
     Indication: POLYCYSTIC OVARIES
     Dosage: UNK
     Dates: start: 20080401, end: 20091001
  5. TRAMADOL [Concomitant]
     Dosage: 50 MG, UNK
     Dates: start: 20091121
  6. YASMIN [Suspect]
     Indication: POLYCYSTIC OVARIES
     Dosage: UNK
     Dates: start: 20080401, end: 20091001
  7. VITAMIN C [Concomitant]
  8. HYDROCODONE BITARTRATE AND ACETAMINOPHEN [Concomitant]
     Indication: VIRAL INFECTION
     Dosage: 1 MG, UNK
     Dates: start: 20091103

REACTIONS (6)
  - PULMONARY EMBOLISM [None]
  - DEPRESSION [None]
  - SUICIDAL IDEATION [None]
  - DEEP VEIN THROMBOSIS [None]
  - PHLEBITIS [None]
  - ANXIETY [None]
